FAERS Safety Report 5404515-9 (Version None)
Quarter: 2007Q3

REPORT INFORMATION
  Report Type: 
  Country: None (occurrence: None)
  Receive Date: 20070802
  Receipt Date: 20070727
  Transmission Date: 20080115
  Serious: Yes (Hospitalization)
  Sender: FDA-Public Use
  Company Number: JP-SHR-JP-2007-005261

PATIENT
  Age: 65 Year
  Sex: Male
  Weight: 55.5 kg

DRUGS (45)
  1. RITUXIMAB (ZENYAKU) [Suspect]
     Indication: FOLLICLE CENTRE LYMPHOMA, FOLLICULAR GRADE I, II, III STAGE II
     Dosage: 375 MG/M2, 1X/DAY
     Route: 041
     Dates: start: 20060904, end: 20060904
  2. RITUXIMAB (ZENYAKU) [Suspect]
     Dosage: 375 MG/M2, 1X/DAY
     Route: 042
     Dates: start: 20061002, end: 20061002
  3. RITUXIMAB (ZENYAKU) [Suspect]
     Dosage: 375 MG/M2, 1X/DAY
     Route: 042
     Dates: start: 20061030, end: 20061030
  4. RITUXIMAB (ZENYAKU) [Suspect]
     Dosage: 375 MG/M2, 1X/DAY
     Route: 042
     Dates: start: 20061127, end: 20061127
  5. RITUXIMAB (ZENYAKU) [Suspect]
     Dosage: 375 MG/M2, 1X/DAY
     Route: 042
     Dates: start: 20061225, end: 20061225
  6. RITUXIMAB (ZENYAKU) [Suspect]
     Dosage: 375 MG/M2, 1X/DAY
     Route: 042
     Dates: start: 20070122, end: 20070122
  7. FLUDARABINE PHOSPHATE [Suspect]
     Indication: FOLLICLE CENTRE LYMPHOMA, FOLLICULAR GRADE I, II, III STAGE II
     Dosage: 40 MG, 1X/DAY
     Route: 048
     Dates: start: 20060904, end: 20060908
  8. FLUDARABINE PHOSPHATE [Suspect]
     Dosage: 40 MG, 1X/DAY
     Route: 048
     Dates: start: 20061002, end: 20061006
  9. FLUDARABINE PHOSPHATE [Suspect]
     Dosage: 40 MG, 1X/DAY
     Route: 048
     Dates: start: 20061030, end: 20061103
  10. FLUDARABINE PHOSPHATE [Suspect]
     Dosage: 40 MG, 1X/DAY
     Route: 048
     Dates: start: 20061127, end: 20061201
  11. FLUDARABINE PHOSPHATE [Suspect]
     Dosage: 40 MG, 1X/DAY
     Route: 048
     Dates: start: 20061225, end: 20061225
  12. FLUDARABINE PHOSPHATE [Suspect]
     Dosage: 40 MG, 1X/DAY
     Route: 048
     Dates: start: 20070122, end: 20070126
  13. BIOFERMIN R [Concomitant]
     Indication: CONSTIPATION
     Dosage: 1 TAB(S), 3X/DAY
     Route: 048
     Dates: start: 20050101, end: 20070403
  14. METHYCOBAL [Concomitant]
     Dosage: 500 A?G, 3X/DAY
     Route: 048
     Dates: start: 20040101, end: 20070403
  15. RHYTHMY [Concomitant]
     Dosage: 1-2 MG/DAY
     Route: 048
     Dates: start: 20010101
  16. AMLODIPINE [Concomitant]
     Indication: HYPERTENSION
     Dosage: 2.5 MG, 1X/DAY
     Route: 048
     Dates: start: 19990101, end: 20070506
  17. ALOSENN [Concomitant]
     Indication: CONSTIPATION
     Dosage: 0.5-1.0 G/TIME, AS REQ'D
     Route: 048
     Dates: start: 20050101, end: 20070403
  18. ULCERMIN [Concomitant]
     Dosage: 1 G, 3X/DAY
     Route: 048
     Dates: start: 20070129
  19. DEPAS [Concomitant]
     Indication: HEADACHE
     Dosage: .5 MG, 1X/DAY
     Route: 048
     Dates: start: 20060907, end: 20060908
  20. DEPAS [Concomitant]
     Dosage: .5 MG, 1X/DAY
     Route: 048
     Dates: start: 20060916, end: 20060916
  21. DEPAS [Concomitant]
     Dosage: 0.5-1.0 MG/DAY
     Route: 048
     Dates: start: 20060926, end: 20070128
  22. DEPAS [Concomitant]
     Dosage: .5 MG, 3X/DAY
     Route: 048
     Dates: start: 20070130, end: 20070206
  23. DEPAS [Concomitant]
     Dosage: 0.5-1.0 MG/DAY
     Route: 048
     Dates: start: 20070207, end: 20070410
  24. BAKTAR [Concomitant]
     Indication: PROPHYLAXIS
     Dosage: 1 TAB(S), 1X/DAY
     Route: 048
     Dates: start: 20061016, end: 20061217
  25. BAKTAR [Concomitant]
     Dosage: 1 TAB(S), 1X/DAY
     Dates: start: 20070110, end: 20070228
  26. KETOPROFEN [Concomitant]
     Indication: HERNIA
     Dosage: UNK, AS REQ'D
     Route: 061
     Dates: start: 19990101
  27. CALONAL [Concomitant]
     Indication: PREMEDICATION
     Dosage: 4000 MG, 1X/DAY
     Route: 048
     Dates: start: 20060904, end: 20060904
  28. CALONAL [Concomitant]
     Dosage: 400 MG, 1X/DAY
     Route: 048
     Dates: start: 20060904, end: 20060904
  29. CALONAL [Concomitant]
     Dosage: 400 MG, 1X/DAY
     Route: 048
     Dates: start: 20061002, end: 20061002
  30. CALONAL [Concomitant]
     Dosage: 400 MG, 1X/DAY
     Route: 048
     Dates: start: 20061030, end: 20061030
  31. CALONAL [Concomitant]
     Dosage: 400 MG, 1X/DAY
     Route: 048
     Dates: start: 20061127, end: 20061127
  32. CALONAL [Concomitant]
     Dosage: 400 MG, 1X/DAY
     Route: 048
     Dates: start: 20061225, end: 20061225
  33. CALONAL [Concomitant]
     Dosage: 400 MG, 1X/DAY
     Route: 048
     Dates: start: 20070122, end: 20070122
  34. POLARAMINE [Concomitant]
     Indication: PREMEDICATION
     Dosage: 2 MG, 1X/DAY
     Route: 048
     Dates: start: 20070904, end: 20070904
  35. POLARAMINE [Concomitant]
     Dosage: 2 MG, 1X/DAY
     Route: 048
     Dates: start: 20061002, end: 20061002
  36. POLARAMINE [Concomitant]
     Dosage: 2 MG, 1X/DAY
     Route: 048
     Dates: start: 20061030, end: 20061030
  37. POLARAMINE [Concomitant]
     Dosage: 2 MG, 1X/DAY
     Route: 048
     Dates: start: 20061127, end: 20061127
  38. POLARAMINE [Concomitant]
     Dosage: 2 MG, 1X/DAY
     Route: 048
     Dates: start: 20061225, end: 20061225
  39. POLARAMINE [Concomitant]
     Dosage: 2 MG, 1X/DAY
     Route: 048
     Dates: start: 20070122, end: 20070122
  40. CHLOR-TRIMETON [Concomitant]
     Dosage: 10 MG, 2X/DAY
     Route: 042
     Dates: start: 20060904, end: 20060904
  41. ZOVIRAX [Concomitant]
     Indication: PROPHYLAXIS
     Dosage: 200 MG, 1X/DAY
     Route: 048
     Dates: start: 20061010, end: 20061015
  42. ZOVIRAX [Concomitant]
     Dosage: 200 MG, 1X/DAY
     Route: 048
     Dates: start: 20061106, end: 20061112
  43. ZOVIRAX [Concomitant]
     Dosage: 200 MG, 1X/DAY
     Route: 048
     Dates: start: 20061204, end: 20061210
  44. ZOVIRAX [Concomitant]
     Dosage: 200 MG, 1X/DAY
     Route: 048
     Dates: start: 20070101, end: 20070107
  45. ZOVIRAX [Concomitant]
     Dosage: 200 MG, 1X/DAY
     Route: 048
     Dates: start: 20070129, end: 20070204

REACTIONS (1)
  - GASTRIC CANCER [None]
